FAERS Safety Report 5774450-5 (Version None)
Quarter: 2008Q2

REPORT INFORMATION
  Report Type: 
  Country: None (occurrence: None)
  Receive Date: 20080616
  Receipt Date: 20080605
  Transmission Date: 20081010
  Serious: No
  Sender: FDA-Public Use
  Company Number: US-ROCHE-568798

PATIENT
  Sex: Female

DRUGS (2)
  1. ACCUTANE [Suspect]
     Indication: DRUG USE FOR UNKNOWN INDICATION
     Dosage: REPORTED AS I TABLET DAILY.
     Route: 065
     Dates: start: 20080201, end: 20080301
  2. ACCUTANE [Suspect]
     Route: 065
     Dates: start: 20080315, end: 20080407

REACTIONS (2)
  - NO ADVERSE EVENT [None]
  - PREGNANCY [None]
